FAERS Safety Report 25259251 (Version 1)
Quarter: 2025Q2

REPORT INFORMATION
  Report Type: Spontaneous
  Country: GB (occurrence: GB)
  Receive Date: 20250501
  Receipt Date: 20250501
  Transmission Date: 20250717
  Serious: Yes (Death, Other)
  Sender: REGENERON
  Company Number: GB-SA-2025SA123554

PATIENT
  Sex: Female

DRUGS (1)
  1. PRALUENT [Suspect]
     Active Substance: ALIROCUMAB
     Indication: Arteriosclerosis coronary artery
     Dosage: 75 MG, QM SOLUTION FOR INJECTION
     Route: 058

REACTIONS (2)
  - Death [Fatal]
  - Inappropriate schedule of product administration [Unknown]
